FAERS Safety Report 22252552 (Version 3)
Quarter: 2023Q2

REPORT INFORMATION
  Report Type: Report from Study
  Country: CO (occurrence: CO)
  Receive Date: 20230426
  Receipt Date: 20230504
  Transmission Date: 20230721
  Serious: Yes (Other)
  Sender: FDA-Public Use
  Company Number: CO-ABBVIE-4741872

PATIENT
  Age: 64 Year
  Sex: Male

DRUGS (1)
  1. VENCLEXTA [Suspect]
     Active Substance: VENETOCLAX
     Indication: Acute myeloid leukaemia
     Dosage: FORM STRENGTH: 100 MG
     Route: 048
     Dates: start: 20221021, end: 20230123

REACTIONS (7)
  - Haematemesis [Recovered/Resolved]
  - Dizziness [Recovering/Resolving]
  - Pyrexia [Recovered/Resolved]
  - Pain [Recovered/Resolved]
  - Asthenia [Recovering/Resolving]
  - Headache [Recovered/Resolved]
  - Intentional product misuse [Unknown]

NARRATIVE: CASE EVENT DATE: 20230123
